FAERS Safety Report 25370002 (Version 2)
Quarter: 2025Q3

REPORT INFORMATION
  Report Type: Report from Study
  Country: CN (occurrence: CN)
  Receive Date: 20250528
  Receipt Date: 20250806
  Transmission Date: 20251020
  Serious: Yes (Hospitalization)
  Sender: EISAI
  Company Number: CN-Eisai-EC-2025-189810

PATIENT
  Age: 55 Year
  Sex: Female
  Weight: 64.00 kg

DRUGS (5)
  1. LENVATINIB [Suspect]
     Active Substance: LENVATINIB
     Indication: Hepatocellular carcinoma
     Dates: start: 20230417, end: 20230516
  2. LENVATINIB [Suspect]
     Active Substance: LENVATINIB
     Dates: start: 20230517, end: 20230907
  3. LENVATINIB [Suspect]
     Active Substance: LENVATINIB
     Dates: start: 20230921, end: 20250319
  4. TREMELIMUMAB [Suspect]
     Active Substance: TREMELIMUMAB
     Indication: Hepatocellular carcinoma
     Dates: start: 20230417, end: 20230417
  5. DURVALUMAB [Suspect]
     Active Substance: DURVALUMAB
     Indication: Hepatocellular carcinoma
     Dates: start: 20230417, end: 20250219

REACTIONS (1)
  - Hepatic function abnormal [Not Recovered/Not Resolved]

NARRATIVE: CASE EVENT DATE: 20250122
